FAERS Safety Report 23251333 (Version 1)
Quarter: 2023Q4

REPORT INFORMATION
  Report Type: Spontaneous
  Country: FR (occurrence: FR)
  Receive Date: 20231201
  Receipt Date: 20231201
  Transmission Date: 20240109
  Serious: Yes (Other)
  Sender: FDA-Public Use
  Company Number: FR-SANDOZ-SDZ2023FR053923

PATIENT
  Sex: Male

DRUGS (1)
  1. AMLODIPINE [Suspect]
     Active Substance: AMLODIPINE BESYLATE
     Indication: Product used for unknown indication
     Dosage: UNK MG
     Route: 065

REACTIONS (8)
  - Haematochezia [Unknown]
  - Erythema [Unknown]
  - Sleep disorder [Unknown]
  - Haemorrhoids [Unknown]
  - Hypotension [Unknown]
  - Cough [Unknown]
  - Fatigue [Unknown]
  - Paraesthesia [Unknown]
